FAERS Safety Report 25836560 (Version 1)
Quarter: 2025Q3

REPORT INFORMATION
  Report Type: Spontaneous
  Country: US (occurrence: None)
  Receive Date: 20250923
  Receipt Date: 20250923
  Transmission Date: 20251020
  Serious: No
  Sender: FDA-CTU
  Company Number: None

PATIENT
  Age: 40 Year
  Sex: Female
  Weight: 60.75 kg

DRUGS (1)
  1. COSMETICS [Suspect]
     Active Substance: COSMETICS
     Indication: Hyperhidrosis
     Route: 061
     Dates: start: 20250919, end: 20250921

REACTIONS (6)
  - Application site rash [None]
  - Rash pruritic [None]
  - Application site hypersensitivity [None]
  - Insomnia [None]
  - Documented hypersensitivity to administered product [None]
  - Rash [None]

NARRATIVE: CASE EVENT DATE: 20250919
